FAERS Safety Report 6315728-6 (Version None)
Quarter: 2009Q3

REPORT INFORMATION
  Report Type: 
  Country: None (occurrence: None)
  Receive Date: 20090818
  Receipt Date: 20090810
  Transmission Date: 20100115
  Serious: Yes (Other)
  Sender: FDA-Public Use
  Company Number: CERZ-1000830

PATIENT
  Sex: Male

DRUGS (1)
  1. CEREZYME [Suspect]
     Indication: GAUCHER'S DISEASE

REACTIONS (4)
  - BLOOD DISORDER [None]
  - MULTI-ORGAN DISORDER [None]
  - MULTIPLE FRACTURES [None]
  - PULMONARY HAEMORRHAGE [None]
